FAERS Safety Report 4624165-1 (Version None)
Quarter: 2005Q1

REPORT INFORMATION
  Report Type: 
  Country: None (occurrence: None)
  Receive Date: 20050331
  Receipt Date: 20050221
  Transmission Date: 20050727
  Serious: Yes (Hospitalization)
  Sender: FDA-Public Use
  Company Number: FR-GLAXOSMITHKLINE-B0372483A

PATIENT
  Age: 74 Year
  Sex: Male

DRUGS (4)
  1. AZANTAC [Suspect]
     Dosage: 150MG ALTERNATE DAYS
     Route: 048
     Dates: start: 20020401, end: 20020526
  2. MOPRAL [Suspect]
     Dosage: 10MG PER DAY
     Route: 048
     Dates: start: 20020401, end: 20020526
  3. CEBUTID [Suspect]
     Dosage: 100MG PER DAY
     Route: 048
     Dates: start: 20020401, end: 20020526
  4. CIMETIDINE [Suspect]
     Dosage: 1.5GK PER DAY
     Dates: start: 20020501

REACTIONS (4)
  - HAEMORRHAGE [None]
  - IDIOPATHIC THROMBOCYTOPENIC PURPURA [None]
  - PETECHIAE [None]
  - THROMBOCYTOPENIA [None]
